FAERS Safety Report 5684432-X (Version None)
Quarter: 2008Q1

REPORT INFORMATION
  Report Type: 
  Country: None (occurrence: None)
  Receive Date: 20080328
  Receipt Date: 20080319
  Transmission Date: 20080703
  Serious: Yes (Hospitalization)
  Sender: FDA-Public Use
  Company Number: US-JNJFOC-20080305115

PATIENT
  Sex: Male
  Weight: 44.45 kg

DRUGS (4)
  1. TOPAMAX [Suspect]
     Indication: BIPOLAR DISORDER
     Route: 048
  2. TOPAMAX [Suspect]
     Indication: AFFECTIVE DISORDER
     Route: 048
  3. RISPERDAL [Suspect]
     Indication: BIPOLAR DISORDER
  4. ADDERALL 10 [Suspect]
     Indication: BIPOLAR DISORDER

REACTIONS (4)
  - ALOPECIA [None]
  - DEPRESSION [None]
  - HYPERACUSIS [None]
  - PARANOIA [None]
